FAERS Safety Report 13839234 (Version 1)
Quarter: 2017Q3

REPORT INFORMATION
  Report Type: Spontaneous
  Country: US (occurrence: US)
  Receive Date: 20170807
  Receipt Date: 20170807
  Transmission Date: 20171127
  Serious: Yes (Other)
  Sender: FDA-Public Use
  Company Number: US-TEVA-794026USA

PATIENT
  Sex: Female

DRUGS (1)
  1. BUPROPION HYDROCHLORIDE XL [Suspect]
     Active Substance: BUPROPION HYDROCHLORIDE
     Route: 065

REACTIONS (6)
  - Insomnia [Unknown]
  - Cardiac disorder [Unknown]
  - Pharyngeal oedema [Unknown]
  - Constipation [Unknown]
  - Dry mouth [Unknown]
  - Product substitution issue [Unknown]
